FAERS Safety Report 9887433 (Version 1)
Quarter: 2014Q1

REPORT INFORMATION
  Report Type: Spontaneous
  Country: US (occurrence: US)
  Receive Date: 20140211
  Receipt Date: 20140211
  Transmission Date: 20141002
  Serious: Yes (Other)
  Sender: FDA-Public Use
  Company Number: US-ROCHE-1347629

PATIENT
  Age: 33 Year
  Sex: Female
  Weight: 62 kg

DRUGS (2)
  1. XOLAIR [Suspect]
     Indication: ASTHMA
     Route: 058
     Dates: start: 20140127
  2. XOLAIR [Suspect]
     Indication: URTICARIA

REACTIONS (2)
  - Anaphylactic reaction [Not Recovered/Not Resolved]
  - Blood pressure increased [Recovered/Resolved]
